FAERS Safety Report 16131313 (Version 1)
Quarter: 2019Q1

REPORT INFORMATION
  Report Type: Report from Study
  Country: None (occurrence: NL)
  Receive Date: 20190328
  Receipt Date: 20190328
  Transmission Date: 20190418
  Serious: Yes (Other)
  Sender: FDA-Public Use
  Company Number: NL-ABBVIE-19K-114-2723165-00

PATIENT
  Age: 59 Year
  Sex: Female

DRUGS (1)
  1. HUMIRA [Suspect]
     Active Substance: ADALIMUMAB
     Indication: RHEUMATOID ARTHRITIS
     Route: 058

REACTIONS (4)
  - Anaphylactic shock [Recovered/Resolved]
  - Nasopharyngitis [Unknown]
  - Blood urine present [Not Recovered/Not Resolved]
  - Cough [Unknown]

NARRATIVE: CASE EVENT DATE: 20190129
